FAERS Safety Report 20692082 (Version 2)
Quarter: 2022Q2

REPORT INFORMATION
  Report Type: Report from Study
  Country: DO (occurrence: DO)
  Receive Date: 20220409
  Receipt Date: 20220428
  Transmission Date: 20220721
  Serious: Yes (Other)
  Sender: FDA-Public Use
  Company Number: DO-JNJFOC-20220229265

PATIENT
  Age: 85 Year
  Sex: Male
  Weight: 54.5 kg

DRUGS (1)
  1. IMBRUVICA [Suspect]
     Active Substance: IBRUTINIB
     Indication: Chronic lymphocytic leukaemia
     Dosage: FIRST MONTH PATIENT CONSUMED 3 PILLS, AFTER FIRST 2 MONTHS HE CONSUMED 2 THEN HE TOOK 3
     Route: 048
     Dates: start: 20210806, end: 20211217

REACTIONS (7)
  - Prostate cancer [Unknown]
  - Illness [Unknown]
  - Influenza [Recovered/Resolved]
  - Blood glucose decreased [Recovering/Resolving]
  - Dizziness [Unknown]
  - Abdominal pain upper [Unknown]
  - Diarrhoea [Unknown]

NARRATIVE: CASE EVENT DATE: 20210901
